FAERS Safety Report 19417434 (Version 1)
Quarter: 2021Q2

REPORT INFORMATION
  Report Type: Spontaneous
  Country: DE (occurrence: DE)
  Receive Date: 20210615
  Receipt Date: 20210615
  Transmission Date: 20210717
  Serious: Yes (Hospitalization)
  Sender: FDA-Public Use
  Company Number: DE-DEXPHARM-20210732

PATIENT
  Age: 54 Year
  Sex: Female

DRUGS (3)
  1. PREGABALIN. [Interacting]
     Active Substance: PREGABALIN
     Dosage: 50 MG, DISCONTINUED FOR A WEEK
  2. ZOPICLON [Suspect]
     Active Substance: ZOPICLONE
     Dosage: 3.75 MG, 0?0?0?1
  3. VENLAFAXIN [Interacting]
     Active Substance: VENLAFAXINE HYDROCHLORIDE
     Dosage: 75 MG, 1?0?0?0

REACTIONS (6)
  - Depressed mood [Unknown]
  - Product dispensing error [Unknown]
  - General physical health deterioration [Unknown]
  - Hypertension [Unknown]
  - Product prescribing error [Unknown]
  - Drug interaction [Unknown]
